FAERS Safety Report 5726839-8 (Version None)
Quarter: 2008Q2

REPORT INFORMATION
  Report Type: 
  Country: None (occurrence: None)
  Receive Date: 20080502
  Receipt Date: 20080422
  Transmission Date: 20081010
  Serious: Yes (Death, Hospitalization, Disabling)
  Sender: FDA-Public Use
  Company Number: US-WYE-H03726108

PATIENT
  Sex: Female
  Weight: 43 kg

DRUGS (19)
  1. TYGACIL [Suspect]
     Indication: SEPSIS
     Dosage: 100 MG LOADING DOSE, THEN 50 MG DAILY
     Route: 041
     Dates: start: 20080219, end: 20080225
  2. TYGACIL [Suspect]
     Indication: PNEUMONIA
  3. METHYLPREDNISOLONE [Concomitant]
     Indication: RHEUMATOID ARTHRITIS
     Route: 048
  4. LEVOFLOXACIN [Concomitant]
     Indication: RESPIRATORY TRACT INFECTION
     Dosage: UNKNOWN
     Route: 065
     Dates: end: 20080219
  5. AMLODIPINE [Concomitant]
  6. CARVEDILOL [Concomitant]
  7. DOXAZOSIN MESYLATE [Concomitant]
  8. OXYCODONE HCL [Concomitant]
  9. BUSPIRONE HCL [Concomitant]
  10. TRAZODONE HCL [Concomitant]
  11. CALCIUM CARBONATE/ERGOCALCIFEROL/RETINOL [Concomitant]
  12. TEMAZEPAM [Concomitant]
  13. LOMOTIL [Concomitant]
     Dosage: AS NEEDED
     Route: 065
  14. HYDRALAZINE HCL [Concomitant]
     Dosage: AS NEEDED
     Route: 065
  15. ONDANSETRON [Concomitant]
     Dosage: AS NEEDED
     Route: 065
  16. EPOETIN ALFA [Concomitant]
     Dosage: AS NEEDED
     Route: 065
  17. PANTOPRAZOLE SODIUM [Concomitant]
     Dosage: AS NEEDED
     Route: 065
  18. LABETALOL HCL [Concomitant]
     Dosage: AS NEEDED
     Route: 065
  19. TAMIFLU [Suspect]
     Indication: INFLUENZA
     Route: 048
     Dates: start: 20080220, end: 20080224

REACTIONS (7)
  - CARDIO-RESPIRATORY ARREST [None]
  - DISEASE PROGRESSION [None]
  - DISSEMINATED INTRAVASCULAR COAGULATION [None]
  - DRUG INEFFECTIVE [None]
  - ENCEPHALOPATHY [None]
  - PANCREATITIS [None]
  - RESPIRATORY FAILURE [None]
